FAERS Safety Report 9928013 (Version 2)
Quarter: 2014Q2

REPORT INFORMATION
  Report Type: Spontaneous
  Country: CH (occurrence: CH)
  Receive Date: 20140227
  Receipt Date: 20140413
  Transmission Date: 20141212
  Serious: Yes (Life-Threatening, Hospitalization)
  Sender: FDA-Public Use
  Company Number: CH-US-EMD SERONO, INC.-7270698

PATIENT
  Sex: Male

DRUGS (8)
  1. REBIF [Suspect]
     Indication: RELAPSING-REMITTING MULTIPLE SCLEROSIS
     Route: 058
     Dates: start: 200702
  2. ECOFENAC [Suspect]
     Indication: BACK PAIN
     Route: 048
  3. MAGNESIUM-DIASPORAL                /00434501/ [Concomitant]
     Indication: PRODUCT USED FOR UNKNOWN INDICATION
     Route: 048
  4. ZYPREXA [Concomitant]
     Indication: PRODUCT USED FOR UNKNOWN INDICATION
     Route: 048
  5. SIRDALUD [Concomitant]
     Indication: BACK PAIN
     Route: 048
  6. TRAMADOL [Concomitant]
     Indication: BACK PAIN
     Route: 048
  7. ZURCAL                             /01263201/ [Concomitant]
     Indication: PRODUCT USED FOR UNKNOWN INDICATION
     Route: 048
  8. TORECAN [Concomitant]
     Indication: PRODUCT USED FOR UNKNOWN INDICATION
     Route: 048

REACTIONS (1)
  - Acute myocardial infarction [Unknown]
